FAERS Safety Report 6355984-1 (Version None)
Quarter: 2009Q3

REPORT INFORMATION
  Report Type: 
  Country: None (occurrence: None)
  Receive Date: 20090911
  Receipt Date: 20090911
  Transmission Date: 20100115
  Serious: Yes (Other)
  Sender: FDA-Public Use
  Company Number: None

PATIENT
  Age: 58 Year
  Sex: Male

DRUGS (1)
  1. METHADONE HYDROCHLORIDE [Suspect]
     Indication: PAIN
     Dosage: 90 MG QID PO
     Route: 048
     Dates: end: 20081201

REACTIONS (7)
  - AGGRESSION [None]
  - CONFUSIONAL STATE [None]
  - HYPOTENSION [None]
  - MENTAL STATUS CHANGES [None]
  - PALPITATIONS [None]
  - SOMNOLENCE [None]
  - TORSADE DE POINTES [None]
